FAERS Safety Report 9455457 (Version 2)
Quarter: 2013Q3

REPORT INFORMATION
  Report Type: Spontaneous
  Country: JP (occurrence: JP)
  Receive Date: 20130813
  Receipt Date: 20130827
  Transmission Date: 20140515
  Serious: No
  Sender: FDA-Public Use
  Company Number: JP-JNJFOC-20130801224

PATIENT
  Sex: Female

DRUGS (1)
  1. ONEDURO [Suspect]
     Indication: CANCER PAIN
     Route: 062

REACTIONS (2)
  - Treatment noncompliance [Unknown]
  - Application site pruritus [Unknown]
